FAERS Safety Report 12835389 (Version 1)
Quarter: 2016Q4

REPORT INFORMATION
  Report Type: Report from Study
  Country: US (occurrence: US)
  Receive Date: 20161011
  Receipt Date: 20161011
  Transmission Date: 20170207
  Serious: Yes (Death, Life-Threatening, Hospitalization, Disabling)
  Sender: FDA-Public Use
  Company Number: US-ROCHE-1813913

PATIENT
  Age: 69 Year
  Sex: Male

DRUGS (30)
  1. RITUXIMAB [Suspect]
     Active Substance: RITUXIMAB
     Indication: B-CELL LYMPHOMA
     Dosage: INDUCTION. FOR 4 CYCLES
     Route: 042
     Dates: start: 20061122, end: 20070104
  2. FLUDARABINE [Suspect]
     Active Substance: FLUDARABINE PHOSPHATE
     Indication: MANTLE CELL LYMPHOMA
     Route: 065
     Dates: start: 20130226, end: 20130415
  3. CYCLOPHOSPHAMIDE. [Suspect]
     Active Substance: CYCLOPHOSPHAMIDE
     Indication: B-CELL LYMPHOMA
     Dosage: INDUCTION. FOR 4 CYCLES.
     Route: 042
     Dates: start: 20061122, end: 20070104
  4. CIDOFOVIR. [Concomitant]
     Active Substance: CIDOFOVIR
     Dosage: BK VIRUS
     Route: 042
  5. CARBOPLATIN. [Concomitant]
     Active Substance: CARBOPLATIN
     Dosage: CONSOLIDATION. FOR 2 CYCLES
     Route: 042
     Dates: start: 20070118, end: 20070216
  6. CYTARABINE. [Concomitant]
     Active Substance: CYTARABINE
     Dosage: CONDITIONING
     Route: 042
     Dates: start: 20070314, end: 20070319
  7. PREDNISONE. [Concomitant]
     Active Substance: PREDNISONE
     Route: 048
     Dates: start: 20140228, end: 20140412
  8. RITUXIMAB [Suspect]
     Active Substance: RITUXIMAB
     Dosage: CONDITIONING
     Route: 042
     Dates: start: 20130305, end: 20130415
  9. CYCLOPHOSPHAMIDE. [Suspect]
     Active Substance: CYCLOPHOSPHAMIDE
     Dosage: SALVAGE. FOR 6 CYCLES
     Route: 042
     Dates: start: 20121005, end: 20130207
  10. METHYLPREDNISOLONE. [Concomitant]
     Active Substance: METHYLPREDNISOLONE
     Indication: GRAFT VERSUS HOST DISEASE
     Route: 042
     Dates: start: 20130311, end: 20140422
  11. RITUXIMAB [Suspect]
     Active Substance: RITUXIMAB
     Dosage: SALVAGE. FOR 6 CYCLES.
     Route: 042
     Dates: start: 20121005, end: 20130207
  12. VINCRISTINE [Concomitant]
     Active Substance: VINCRISTINE
     Dosage: INDUCTION. FOR 4 CYCLES
     Route: 042
     Dates: start: 20061122, end: 20070104
  13. FOSCARNET [Concomitant]
     Active Substance: FOSCARNET
     Indication: CYTOMEGALOVIRUS VIRAEMIA
     Dosage: FOSCARNET WAS DISCONTINUED DUE TO CONCERNS OF DRUG-INDUCED NEUROTOXICITY.
     Route: 065
  14. ETOPOSIDE. [Concomitant]
     Active Substance: ETOPOSIDE
     Dosage: CONSOLIDATION. FOR 2 CYCLES
     Route: 042
     Dates: start: 20070118, end: 20070216
  15. BORTEZOMIB [Concomitant]
     Active Substance: BORTEZOMIB
     Dosage: SALVAGE
     Route: 058
     Dates: start: 20121005, end: 20130207
  16. CARMUSTINE [Concomitant]
     Active Substance: CARMUSTINE
     Dosage: FOR 1 CYCLE. CONDITIONING
     Route: 042
     Dates: start: 20070314, end: 20070319
  17. FLUDARABINE [Concomitant]
     Active Substance: FLUDARABINE PHOSPHATE
     Dosage: CONDITIONING
     Route: 042
     Dates: start: 20130305, end: 20130415
  18. FLUDARABINE [Suspect]
     Active Substance: FLUDARABINE PHOSPHATE
     Indication: B-CELL LYMPHOMA
  19. CYCLOPHOSPHAMIDE. [Suspect]
     Active Substance: CYCLOPHOSPHAMIDE
     Dosage: CONDITIONING
     Route: 042
     Dates: start: 20130305, end: 20130415
  20. DOXORUBICIN [Concomitant]
     Active Substance: DOXORUBICIN
     Dosage: INDUCTION. FOR 4 CYCLES
     Route: 042
     Dates: start: 20061122, end: 20070104
  21. ETOPOSIDE. [Concomitant]
     Active Substance: ETOPOSIDE
     Dosage: CONDITIONING
     Route: 042
     Dates: start: 20070314, end: 20070319
  22. PREDNISONE. [Concomitant]
     Active Substance: PREDNISONE
     Indication: GRAFT VERSUS HOST DISEASE
     Dosage: SALVAGE. FOR 6 CYCLES.
     Route: 048
     Dates: start: 20121005, end: 20130207
  23. RITUXIMAB [Suspect]
     Active Substance: RITUXIMAB
     Dosage: CONSOLIDATION. FOR 2 CYCLES.
     Route: 042
     Dates: start: 20070118, end: 20070216
  24. MELPHALAN [Concomitant]
     Active Substance: MELPHALAN
     Dosage: CONDITIONING
     Route: 042
     Dates: start: 20070314, end: 20090319
  25. BUDESONIDE. [Concomitant]
     Active Substance: BUDESONIDE
     Indication: GRAFT VERSUS HOST DISEASE
     Route: 048
     Dates: start: 20131203, end: 20140406
  26. RITUXIMAB [Suspect]
     Active Substance: RITUXIMAB
     Indication: MANTLE CELL LYMPHOMA
     Dosage: HIS 4TH POST TRANSPLANT DOSE OF RITUXIMAB WAS WITHHELD DUE TO POSSIBLE CONTRIBUTION TO EOSINOPHILIA.
     Route: 042
     Dates: start: 20130226, end: 20130415
  27. ANTI-THYMOCYTE GLOBULIN (RABBIT) NOS [Suspect]
     Active Substance: LAPINE T-LYMPHOCYTE IMMUNE GLOBULIN
     Indication: MANTLE CELL LYMPHOMA
     Route: 065
     Dates: start: 20130226, end: 20130415
  28. CYCLOPHOSPHAMIDE. [Suspect]
     Active Substance: CYCLOPHOSPHAMIDE
     Indication: MANTLE CELL LYMPHOMA
     Route: 065
     Dates: start: 20130226, end: 20130415
  29. IMMUNOGLOBULIN IV [Concomitant]
     Active Substance: HUMAN IMMUNOGLOBULIN G
     Dosage: HIGH-DOSE. FR POSSIBLE AUTOIMMUNE/PARANEOPLASTIC PROCESS
     Route: 042
  30. IFOSFAMIDE. [Concomitant]
     Active Substance: IFOSFAMIDE
     Dosage: CONSOLIDATION. FOR 2 CYCLES
     Route: 042
     Dates: start: 20070118, end: 20070216

REACTIONS (7)
  - Pneumonia [Not Recovered/Not Resolved]
  - Hypoxia [Not Recovered/Not Resolved]
  - Encephalopathy [Not Recovered/Not Resolved]
  - Nervous system disorder [Not Recovered/Not Resolved]
  - Seizure [Recovered/Resolved]
  - Death [Fatal]
  - Confusional state [Not Recovered/Not Resolved]

NARRATIVE: CASE EVENT DATE: 20140405
